FAERS Safety Report 12633152 (Version 1)
Quarter: 2016Q3

REPORT INFORMATION
  Report Type: Spontaneous
  Country: US (occurrence: None)
  Receive Date: 20160808
  Receipt Date: 20160808
  Transmission Date: 20161109
  Serious: Yes (Other)
  Sender: FDA-Public Use
  Company Number: None

PATIENT
  Age: 59 Year
  Sex: Male

DRUGS (1)
  1. PROMETHAZINE 25MG/ML INJ [Suspect]
     Active Substance: PROMETHAZINE HYDROCHLORIDE
     Indication: PAIN
     Route: 042
     Dates: start: 20160713

REACTIONS (2)
  - Cyanosis [None]
  - Somnolence [None]

NARRATIVE: CASE EVENT DATE: 20160713
